FAERS Safety Report 10320311 (Version 1)
Quarter: 2014Q3

REPORT INFORMATION
  Report Type: Spontaneous
  Country: CH (occurrence: CH)
  Receive Date: 20140719
  Receipt Date: 20140719
  Transmission Date: 20150326
  Serious: Yes (Hospitalization, Other)
  Sender: FDA-Public Use
  Company Number: PHHY2014CH087454

PATIENT
  Age: 29 Year
  Sex: Female

DRUGS (5)
  1. DOCETAXEL [Suspect]
     Active Substance: DOCETAXEL
     Indication: INVASIVE DUCTAL BREAST CARCINOMA
  2. EPIRUBICIN [Suspect]
     Active Substance: EPIRUBICIN
     Indication: INVASIVE DUCTAL BREAST CARCINOMA
  3. CYCLOPHOSPHAMIDE. [Suspect]
     Active Substance: CYCLOPHOSPHAMIDE
     Indication: INVASIVE DUCTAL BREAST CARCINOMA
  4. 5-FLUOROURACIL [Suspect]
     Active Substance: FLUOROURACIL
     Indication: INVASIVE DUCTAL BREAST CARCINOMA
  5. CELESTON [Suspect]
     Active Substance: BETAMETHASONE

REACTIONS (11)
  - Brain stem syndrome [Recovered/Resolved]
  - Premature delivery [Unknown]
  - Metastases to central nervous system [Recovering/Resolving]
  - Maternal exposure during pregnancy [Unknown]
  - Pneumothorax [None]
  - Dyspraxia [Recovered/Resolved]
  - Metastases to lung [Recovering/Resolving]
  - Dizziness [Recovered/Resolved]
  - Metastases to placenta [Unknown]
  - Caesarean section [None]
  - Malignant neoplasm progression [Recovering/Resolving]
